FAERS Safety Report 15835285 (Version 2)
Quarter: 2019Q1

REPORT INFORMATION
  Report Type: Spontaneous
  Country: FR (occurrence: FR)
  Receive Date: 20190116
  Receipt Date: 20190314
  Transmission Date: 20190417
  Serious: Yes (Other)
  Sender: FDA-Public Use
  Company Number: FR-CELLTRION INC.-2019FR017633

PATIENT

DRUGS (2)
  1. INFLIXIMAB (UNKNOWN) [Suspect]
     Active Substance: INFLIXIMAB
     Indication: RHEUMATOID ARTHRITIS
     Dosage: DOSAGE FORM: LYOPHILIZED POWDER
     Route: 042
     Dates: start: 200009, end: 200201
  2. METHOTREXATE SODIUM. [Suspect]
     Active Substance: METHOTREXATE SODIUM
     Indication: RHEUMATOID ARTHRITIS
     Dosage: UNKDOSAGE FORM: UNSPECIFIED
     Route: 065
     Dates: end: 200201

REACTIONS (2)
  - Rheumatoid arthritis [Recovered/Resolved]
  - Drug ineffective [Recovered/Resolved]
